FAERS Safety Report 25239030 (Version 1)
Quarter: 2025Q2

REPORT INFORMATION
  Report Type: Spontaneous
  Country: US (occurrence: US)
  Receive Date: 20250425
  Receipt Date: 20250425
  Transmission Date: 20250717
  Serious: Yes (Life-Threatening, Hospitalization)
  Sender: MYLAN
  Company Number: US-MYLANLABS-2025M1034045

PATIENT
  Age: 62 Year
  Sex: Female

DRUGS (2)
  1. METHADONE [Suspect]
     Active Substance: METHADONE HYDROCHLORIDE
     Indication: Drug dependence
     Dosage: 100 MILLIGRAM, QD
  2. METHADONE [Suspect]
     Active Substance: METHADONE HYDROCHLORIDE

REACTIONS (6)
  - Drug withdrawal syndrome [Recovering/Resolving]
  - Stress cardiomyopathy [Recovering/Resolving]
  - Posterior reversible encephalopathy syndrome [Recovering/Resolving]
  - Treatment noncompliance [Recovering/Resolving]
  - Cardiac failure [Recovering/Resolving]
  - Respiratory failure [Recovering/Resolving]
